FAERS Safety Report 5789387-5 (Version None)
Quarter: 2008Q2

REPORT INFORMATION
  Report Type: 
  Country: None (occurrence: None)
  Receive Date: 20080626
  Receipt Date: 20080618
  Transmission Date: 20081010
  Serious: Yes (Other)
  Sender: FDA-Public Use
  Company Number: US-AMGEN-US287098

PATIENT
  Sex: Male

DRUGS (4)
  1. ARANESP [Suspect]
     Indication: RENAL FAILURE CHRONIC
     Route: 065
     Dates: start: 20070725, end: 20080612
  2. VITAMINS NOS [Concomitant]
  3. CELLCEPT [Concomitant]
  4. BACTRIM [Concomitant]

REACTIONS (1)
  - APLASIA PURE RED CELL [None]
